FAERS Safety Report 8548237-4 (Version None)
Quarter: 2012Q3

REPORT INFORMATION
  Report Type: 
  Country: None (occurrence: None)
  Receive Date: 20120730
  Receipt Date: 20120723
  Transmission Date: 20120928
  Serious: No
  Sender: FDA-Public Use
  Company Number: US-009507513-1207USA009840

PATIENT

DRUGS (2)
  1. PRADAXA [Suspect]
     Dosage: 300 MG, UNK
     Route: 048
  2. ZOCOR [Suspect]
     Dosage: 20 MG, UNK
     Route: 048

REACTIONS (1)
  - ALOPECIA [None]
